FAERS Safety Report 9880905 (Version 1)
Quarter: 2014Q1

REPORT INFORMATION
  Report Type: Spontaneous
  Country: US (occurrence: None)
  Receive Date: 20140206
  Receipt Date: 20140206
  Transmission Date: 20141002
  Serious: Yes (Hospitalization, Other)
  Sender: FDA-Public Use
  Company Number: None

PATIENT
  Age: 23 Year
  Sex: Male
  Weight: 107 kg

DRUGS (1)
  1. MAGNEVIST (GADOPENTETATE DIMELUMINE) [Suspect]
     Indication: SCAN WITH CONTRAST
     Dosage: 19 ML ONE TIME DOSE, IV VIA POWER INECTION
     Route: 042
     Dates: start: 20131204

REACTIONS (8)
  - Blood pressure systolic increased [None]
  - Respiratory rate increased [None]
  - Dyspnoea [None]
  - Wheezing [None]
  - Eye pruritus [None]
  - Pruritus [None]
  - Cough [None]
  - Pain [None]
